FAERS Safety Report 6866763-0 (Version None)
Quarter: 2010Q3

REPORT INFORMATION
  Report Type: 
  Country: None (occurrence: None)
  Receive Date: 20100722
  Receipt Date: 20100709
  Transmission Date: 20110219
  Serious: Yes (Other)
  Sender: FDA-Public Use
  Company Number: PHHY2010JP43135

PATIENT
  Age: 68 Year
  Sex: Female

DRUGS (2)
  1. ZOMETA [Suspect]
     Indication: METASTASES TO BONE
     Route: 041
  2. AREDIA [Suspect]
     Indication: METASTASES TO BONE
     Route: 041

REACTIONS (4)
  - BONE DISORDER [None]
  - DENTAL FISTULA [None]
  - GINGIVAL PAIN [None]
  - OSTEOMYELITIS [None]
